FAERS Safety Report 4550650-7 (Version None)
Quarter: 2004Q4

REPORT INFORMATION
  Report Type: 
  Country: None (occurrence: None)
  Receive Date: 20041227
  Receipt Date: 20040903
  Transmission Date: 20050328
  Serious: No
  Sender: FDA-Public Use
  Company Number: 04P-163-0272393-00

PATIENT
  Age: 71 Year
  Sex: Female
  Weight: 72.5755 kg

DRUGS (10)
  1. HUMIRA [Suspect]
     Indication: RHEUMATOID ARTHRITIS
     Dosage: 40 MG, 1 IN 2 WK, SUBCUTANEOUS
     Route: 058
     Dates: start: 20040101
  2. L-THYROXINE [Concomitant]
  3. ATENOLOL [Concomitant]
  4. TOLTERODINE TARTRATE [Concomitant]
  5. METHOTREXATE [Concomitant]
  6. MULTIVITAMIN [Concomitant]
  7. CALCIUM GLUCONATE [Concomitant]
  8. BECOSYM FORTE [Concomitant]
  9. LANSOPRAZOLE [Concomitant]
  10. ATORVASTATIN [Concomitant]

REACTIONS (1)
  - PAIN [None]
